FAERS Safety Report 8265763-6 (Version None)
Quarter: 2012Q2

REPORT INFORMATION
  Report Type: 
  Country: None (occurrence: None)
  Receive Date: 20120406
  Receipt Date: 20120327
  Transmission Date: 20120825
  Serious: Yes (Hospitalization, Disabling, Other)
  Sender: FDA-Public Use
  Company Number: FR-ROCHE-785186

PATIENT
  Sex: Female

DRUGS (4)
  1. XENAZINE [Suspect]
     Indication: PRODUCT USED FOR UNKNOWN INDICATION
  2. ABILIFY [Suspect]
     Indication: PRODUCT USED FOR UNKNOWN INDICATION
  3. ISOTRETINOIN [Suspect]
     Indication: ACNE
     Dosage: (UNPRECISED DOSE)
     Route: 065
  4. ISOTRETINOIN [Suspect]
     Dosage: DOSE INCREASE
     Route: 065

REACTIONS (16)
  - DEPRESSION [None]
  - FATIGUE [None]
  - FAECES DISCOLOURED [None]
  - ANXIETY [None]
  - STRESS [None]
  - MENTAL IMPAIRMENT [None]
  - DYSTONIA [None]
  - DRY SKIN [None]
  - DELUSION [None]
  - EMOTIONAL DISORDER [None]
  - ASTHENIA [None]
  - DYSGRAPHIA [None]
  - ALOPECIA [None]
  - SUICIDAL IDEATION [None]
  - PERSONALITY DISORDER [None]
  - LIP DRY [None]
